FAERS Safety Report 9693089 (Version 1)
Quarter: 2013Q4

REPORT INFORMATION
  Report Type: Spontaneous
  Country: ES (occurrence: None)
  Receive Date: 20131114
  Receipt Date: 20131114
  Transmission Date: 20140711
  Serious: Yes (Death)
  Sender: FDA-Public Use
  Company Number: 2013AP009665

PATIENT
  Age: 75 Year
  Sex: Male

DRUGS (2)
  1. CITALOPRAM [Suspect]
     Dosage: UNKNOWN;UNK;UNK
  2. VENLAFAXINE (VENLAFAXINE) [Suspect]
     Dosage: UNKNOWN; UNK;UNK

REACTIONS (5)
  - Toxicity to various agents [None]
  - Completed suicide [None]
  - Arteriosclerosis coronary artery [None]
  - Pulmonary oedema [None]
  - Myocardial infarction [None]
